FAERS Safety Report 7088039-1 (Version None)
Quarter: 2010Q4

REPORT INFORMATION
  Report Type: 
  Country: None (occurrence: None)
  Receive Date: 20101108
  Receipt Date: 20101028
  Transmission Date: 20110411
  Serious: Yes (Hospitalization)
  Sender: FDA-Public Use
  Company Number: DE-ALEXION-A201000731

PATIENT

DRUGS (6)
  1. SOLIRIS [Suspect]
     Indication: PAROXYSMAL NOCTURNAL HAEMOGLOBINURIA
     Dosage: UNK
     Route: 042
     Dates: start: 20060601
  2. CYCLOSPORINE [Suspect]
     Indication: APLASTIC ANAEMIA
     Dosage: SERUM TARGET 150-250-MCG/L
     Route: 048
     Dates: start: 20060101
  3. ARANESP [Concomitant]
     Indication: APLASTIC ANAEMIA
     Dosage: 300 MCG QW
     Route: 058
  4. CERAZETTE                          /00754001/ [Concomitant]
     Indication: CONTRACEPTION
     Dosage: 0.075 MG, UNK
     Route: 048
     Dates: start: 20100101
  5. FOLSAN [Concomitant]
     Indication: PAROXYSMAL NOCTURNAL HAEMOGLOBINURIA
     Dosage: 5 MG, UNK
     Route: 048
  6. MENINGOCOCCAL VACCINE [Concomitant]
     Indication: IMMUNISATION
     Dosage: UNK
     Dates: start: 20100803, end: 20100803

REACTIONS (1)
  - BREAST CANCER IN SITU [None]
